FAERS Safety Report 10305857 (Version 1)
Quarter: 2014Q3

REPORT INFORMATION
  Report Type: Spontaneous
  Country: US (occurrence: None)
  Receive Date: 20140714
  Receipt Date: 20140714
  Transmission Date: 20150326
  Serious: Yes (Hospitalization)
  Sender: FDA-Public Use
  Company Number: None

PATIENT
  Age: 58 Year
  Sex: Male
  Weight: 82.5 kg

DRUGS (4)
  1. ABRAXANE [Suspect]
     Active Substance: PACLITAXEL
     Indication: PANCREATIC CARCINOMA METASTATIC
     Dosage: 85MG/M2, Q2WEEKS?
     Dates: start: 20140417
  2. OXALIPLATIN. [Suspect]
     Active Substance: OXALIPLATIN
  3. LEUCOVORIN [Suspect]
     Active Substance: LEUCOVORIN
  4. 5-FU [Suspect]
     Active Substance: FLUOROURACIL

REACTIONS (4)
  - Dizziness [None]
  - Presyncope [None]
  - Hypotension [None]
  - Muscular weakness [None]

NARRATIVE: CASE EVENT DATE: 20140705
